FAERS Safety Report 9683441 (Version 1)
Quarter: 2013Q4

REPORT INFORMATION
  Report Type: Spontaneous
  Country: GB (occurrence: GB)
  Receive Date: 20131112
  Receipt Date: 20131112
  Transmission Date: 20140711
  Serious: Yes (Hospitalization)
  Sender: FDA-Public Use
  Company Number: GB-TEVA-443244ISR

PATIENT
  Sex: 0

DRUGS (1)
  1. FENTANYL [Suspect]
     Route: 065

REACTIONS (2)
  - Foetal distress syndrome [Unknown]
  - Live birth [Unknown]
